FAERS Safety Report 6148589-9 (Version None)
Quarter: 2009Q2

REPORT INFORMATION
  Report Type: 
  Country: None (occurrence: None)
  Receive Date: 20090406
  Receipt Date: 20090406
  Transmission Date: 20091009
  Serious: Yes (Death)
  Sender: FDA-Public Use
  Company Number: None

PATIENT
  Sex: Female

DRUGS (1)
  1. METHADONE HCL [Suspect]
     Dates: start: 20090211, end: 20090214

REACTIONS (1)
  - DRUG TOXICITY [None]
